FAERS Safety Report 19661727 (Version 1)
Quarter: 2021Q3

REPORT INFORMATION
  Report Type: Spontaneous
  Country: US (occurrence: US)
  Receive Date: 20210805
  Receipt Date: 20210805
  Transmission Date: 20211014
  Serious: Yes (Other)
  Sender: FDA-Public Use
  Company Number: US-ACCORD-189023

PATIENT
  Age: 76 Year
  Sex: Female
  Weight: 76.66 kg

DRUGS (4)
  1. CHLORTALIDONE [Concomitant]
     Active Substance: CHLORTHALIDONE
     Dates: start: 2014
  2. DOCETAXEL. [Suspect]
     Active Substance: DOCETAXEL
     Indication: BREAST CANCER
     Dosage: DOSAGE: 149?145 MG
     Dates: start: 20150106, end: 20150421
  3. PARAPLATIN [Suspect]
     Active Substance: CARBOPLATIN
     Indication: BREAST CANCER
     Dosage: AS SEQUENTIAL THERAPY TO DOCETAXEL
  4. HERCEPTIN [Suspect]
     Active Substance: TRASTUZUMAB
     Indication: BREAST CANCER
     Dosage: AS SEQUENTIAL THERAPY WITH DOCETAXEL

REACTIONS (1)
  - Alopecia [Not Recovered/Not Resolved]

NARRATIVE: CASE EVENT DATE: 201504
